FAERS Safety Report 25518341 (Version 2)
Quarter: 2025Q3

REPORT INFORMATION
  Report Type: Spontaneous
  Country: CN (occurrence: CN)
  Receive Date: 20250704
  Receipt Date: 20250710
  Transmission Date: 20251021
  Serious: Yes (Other)
  Sender: TAKEDA
  Company Number: CN-JNJFOC-20250632750

PATIENT
  Age: 51 Year
  Sex: Female

DRUGS (5)
  1. BORTEZOMIB [Suspect]
     Active Substance: BORTEZOMIB
     Indication: POEMS syndrome
  2. IXAZOMIB [Suspect]
     Active Substance: IXAZOMIB
     Indication: POEMS syndrome
  3. DEXAMETHASONE [Suspect]
     Active Substance: DEXAMETHASONE
     Indication: POEMS syndrome
  4. CYCLOPHOSPHAMIDE [Suspect]
     Active Substance: CYCLOPHOSPHAMIDE
     Indication: POEMS syndrome
  5. TOLODODEKIN ALFA [Suspect]
     Active Substance: TOLODODEKIN ALFA
     Indication: POEMS syndrome
     Dosage: 16 MILLIGRAM/KILOGRAM, 1/WEEK

REACTIONS (3)
  - General physical health deterioration [Unknown]
  - Therapy non-responder [Unknown]
  - Off label use [Unknown]
